FAERS Safety Report 19410704 (Version 2)
Quarter: 2021Q3

REPORT INFORMATION
  Report Type: Spontaneous
  Country: JP (occurrence: JP)
  Receive Date: 20210614
  Receipt Date: 20210708
  Transmission Date: 20211014
  Serious: Yes (Death, Hospitalization, Other)
  Sender: FDA-Public Use
  Company Number: JP-ASTELLAS-2021JP010116

PATIENT
  Age: 59 Year
  Sex: Male

DRUGS (1)
  1. XTANDI [Suspect]
     Active Substance: ENZALUTAMIDE
     Indication: HORMONE-REFRACTORY PROSTATE CANCER
     Dosage: 160 MG/DAY, UNKNOWN FREQ.
     Route: 048

REACTIONS (8)
  - Metastases to lung [Fatal]
  - Pulmonary haemorrhage [Fatal]
  - Asphyxia [Fatal]
  - Pneumonia [Fatal]
  - Metastases to liver [Fatal]
  - Platelet count decreased [Fatal]
  - Disseminated intravascular coagulation [Unknown]
  - Haemoglobin decreased [Fatal]

NARRATIVE: CASE EVENT DATE: 20210604
